FAERS Safety Report 9544205 (Version 1)
Quarter: 2013Q3

REPORT INFORMATION
  Report Type: Spontaneous
  Country: US (occurrence: US)
  Receive Date: 20130923
  Receipt Date: 20130923
  Transmission Date: 20140515
  Serious: No
  Sender: FDA-Public Use
  Company Number: US-ASTRAZENECA-2013SE62552

PATIENT
  Age: 69 Year
  Sex: 0

DRUGS (1)
  1. ZESTRIL [Suspect]
     Indication: BLOOD PRESSURE
     Route: 048
     Dates: start: 201212, end: 201305

REACTIONS (3)
  - Blood pressure increased [Unknown]
  - Cough [Unknown]
  - Drug dose omission [Unknown]
